FAERS Safety Report 24674037 (Version 2)
Quarter: 2025Q4

REPORT INFORMATION
  Report Type: Spontaneous
  Country: EU (occurrence: EU)
  Receive Date: 20241128
  Receipt Date: 20251028
  Transmission Date: 20260119
  Serious: Yes (Life-Threatening)
  Sender: RANBAXY
  Company Number: EU-SUN PHARMACEUTICAL INDUSTRIES LTD-2024RR-481315

PATIENT
  Age: 65 Year
  Sex: Male
  Weight: 62.5 kg

DRUGS (7)
  1. RILMENIDINE [Suspect]
     Active Substance: RILMENIDINE
     Indication: Poisoning deliberate
     Dosage: 8 MILLIGRAM
     Route: 048
     Dates: start: 20230906, end: 20230906
  2. PERINDOPRIL [Suspect]
     Active Substance: PERINDOPRIL
     Indication: Poisoning deliberate
     Dosage: 32 MILLIGRAM
     Route: 048
     Dates: start: 20230906, end: 20230906
  3. ATORVASTATIN [Suspect]
     Active Substance: ATORVASTATIN
     Indication: Poisoning deliberate
     Dosage: 160 MILLIGRAM
     Route: 048
     Dates: start: 20230906, end: 20230906
  4. ESOMEPRAZOLE [Suspect]
     Active Substance: ESOMEPRAZOLE
     Indication: Poisoning deliberate
     Dosage: 160 MILLIGRAM
     Route: 048
     Dates: start: 20230906, end: 20230906
  5. LEVETIRACETAM [Suspect]
     Active Substance: LEVETIRACETAM
     Indication: Poisoning deliberate
     Dosage: 10 GRAM
     Route: 048
     Dates: start: 20230906, end: 20230906
  6. NICARDIPINE HYDROCHLORIDE [Suspect]
     Active Substance: NICARDIPINE HYDROCHLORIDE
     Indication: Poisoning deliberate
     Dosage: 12 DOSAGE FORM
     Route: 048
     Dates: start: 20230906, end: 20230906
  7. ASPIRIN [Suspect]
     Active Substance: ASPIRIN
     Indication: Poisoning deliberate
     Dosage: 800 MILLIGRAM
     Route: 048
     Dates: start: 20230906, end: 20230906

REACTIONS (2)
  - Circulatory collapse [Recovered/Resolved]
  - Intentional overdose [Recovered/Resolved]

NARRATIVE: CASE EVENT DATE: 20230906
